FAERS Safety Report 4999894-0 (Version None)
Quarter: 2006Q2

REPORT INFORMATION
  Report Type: 
  Country: None (occurrence: None)
  Receive Date: 20060509
  Receipt Date: 20060418
  Transmission Date: 20061013
  Serious: Yes (Death)
  Sender: FDA-Public Use
  Company Number: DE200603001456

PATIENT
  Sex: Male

DRUGS (3)
  1. ZYPREXA [Suspect]
     Indication: PSYCHOTIC DISORDER
     Dosage: DAILY (1/D); ORAL
     Route: 048
     Dates: start: 20050801
  2. ZYPREXA [Suspect]
     Indication: PSYCHOTIC DISORDER
     Dosage: 15 MG, DAILY (1/D);
     Dates: start: 20050101
  3. MAXALT [Concomitant]

REACTIONS (5)
  - CONVULSIVE THRESHOLD LOWERED [None]
  - DEPRESSION [None]
  - DRUG ADMINISTRATION ERROR [None]
  - EPILEPSY [None]
  - SUICIDE ATTEMPT [None]
